FAERS Safety Report 16861743 (Version 2)
Quarter: 2019Q4

REPORT INFORMATION
  Report Type: Report from Study
  Country: None (occurrence: US)
  Receive Date: 20190927
  Receipt Date: 20191110
  Transmission Date: 20200122
  Serious: Yes (Other)
  Sender: FDA-Public Use
  Company Number: US-ABBVIE-19K-163-2939127-00

PATIENT
  Age: 64 Year
  Sex: Male
  Weight: 145.28 kg

DRUGS (2)
  1. HUMIRA [Suspect]
     Active Substance: ADALIMUMAB
     Indication: PSORIASIS
     Route: 058
     Dates: start: 2014
  2. HUMIRA [Suspect]
     Active Substance: ADALIMUMAB
     Indication: PSORIATIC ARTHROPATHY

REACTIONS (5)
  - Gait inability [Recovering/Resolving]
  - Fall [Recovered/Resolved]
  - Nerve compression [Recovered/Resolved]
  - Headache [Recovered/Resolved]
  - Spinal stenosis [Recovering/Resolving]

NARRATIVE: CASE EVENT DATE: 201905
